FAERS Safety Report 8698818 (Version 3)
Quarter: 2012Q4

REPORT INFORMATION
  Report Type: 
  Country: US (occurrence: US)
  Receive Date: 20120802
  Receipt Date: 20121010
  Transmission Date: 20130627
  Serious: Yes (Death, Hospitalization)
  Sender: FDA-Public Use
  Company Number: US-INCYTE CORPORATION-2012IN001373

PATIENT
  Age: 78 Year
  Sex: Male
  Weight: 99.77 kg

DRUGS (3)
  1. JAKAFI [Suspect]
     Indication: MYELOFIBROSIS
     Dosage: Not specified
     Dates: start: 20120503, end: 20120706
  2. PLAVIX [Concomitant]
  3. THALIDOMIDE [Concomitant]

REACTIONS (9)
  - Post procedural haemorrhage [Fatal]
  - Shock haemorrhagic [Fatal]
  - Adrenocortical insufficiency acute [Unknown]
  - Myocardial infarction [Unknown]
  - Drug ineffective [None]
  - Anaemia [None]
  - Acidosis [None]
  - Hypercalcaemia [None]
  - Right ventricular failure [None]
